FAERS Safety Report 5022658-9 (Version None)
Quarter: 2006Q2

REPORT INFORMATION
  Report Type: 
  Country: None (occurrence: None)
  Receive Date: 20060609
  Receipt Date: 20060519
  Transmission Date: 20061013
  Serious: Yes (Other)
  Sender: FDA-Public Use
  Company Number: JP-ABBOTT-06P-087-0334197-00

PATIENT
  Sex: Female

DRUGS (4)
  1. KLARICID TABLETS [Suspect]
     Indication: MYCOPLASMA INFECTION
     Route: 048
     Dates: start: 20060508
  2. KLARICID TABLETS [Suspect]
  3. ORCIPRENALINE SULFATE [Concomitant]
     Indication: BRONCHITIS
     Route: 048
     Dates: start: 20060508, end: 20060519
  4. ORCIPRENALINE SULFATE [Concomitant]

REACTIONS (2)
  - CONVULSION [None]
  - LOSS OF CONSCIOUSNESS [None]
